FAERS Safety Report 23071010 (Version 1)
Quarter: 2023Q4

REPORT INFORMATION
  Report Type: Other
  Country: EC (occurrence: EC)
  Receive Date: 20231016
  Receipt Date: 20231016
  Transmission Date: 20240109
  Serious: Yes (Hospitalization)
  Sender: FDA-Public Use
  Company Number: EC-Merck Healthcare KGaA-2023479311

PATIENT
  Age: 35 Year
  Sex: Female

DRUGS (5)
  1. METFORMIN [Suspect]
     Active Substance: METFORMIN HYDROCHLORIDE
     Indication: Polycystic ovarian syndrome
  2. CETROTIDE [Suspect]
     Active Substance: CETRORELIX ACETATE
     Indication: In vitro fertilisation
     Route: 058
     Dates: start: 20181111
  3. GONAL-F [Suspect]
     Active Substance: FOLLITROPIN
     Indication: In vitro fertilisation
     Route: 058
     Dates: start: 20181115
  4. CABERGOLINE [Concomitant]
     Active Substance: CABERGOLINE
     Indication: Product used for unknown indication
     Route: 048
  5. AZITHROMYCIN [Concomitant]
     Active Substance: AZITHROMYCIN
     Indication: Product used for unknown indication

REACTIONS (2)
  - Ovarian hyperstimulation syndrome [Recovered/Resolved]
  - Off label use [Unknown]
